FAERS Safety Report 7348226-1 (Version None)
Quarter: 2011Q1

REPORT INFORMATION
  Report Type: 
  Country: None (occurrence: None)
  Receive Date: 20110311
  Receipt Date: 20110304
  Transmission Date: 20110831
  Serious: Yes (Hospitalization)
  Sender: FDA-Public Use
  Company Number: US-PFIZER INC-2011046150

PATIENT
  Sex: Male
  Weight: 63.492 kg

DRUGS (4)
  1. KEPPRA [Concomitant]
     Dosage: UNK
  2. DECADRON [Concomitant]
     Dosage: UNK
  3. SUNITINIB MALATE [Suspect]
     Indication: BRAIN NEOPLASM MALIGNANT
     Dosage: 50 MG, 1X/DAY
     Route: 048
     Dates: start: 20101209, end: 20101222
  4. ATIVAN [Concomitant]
     Dosage: UNK

REACTIONS (1)
  - CEREBROVASCULAR ACCIDENT [None]
